FAERS Safety Report 7888309 (Version 6)
Quarter: 2013Q2

REPORT INFORMATION
  Report Type: Report from Study
  Country: DE (occurrence: DE)
  Receive Date: 20110406
  Receipt Date: 20130408
  Transmission Date: 20140414
  Serious: Yes (Death, Hospitalization)
  Sender: FDA-Public Use
  Company Number: DE-BRISTOL-MYERS SQUIBB COMPANY-15647811

PATIENT
  Age: 47 Year
  Sex: Male
  Weight: 80 kg

DRUGS (10)
  1. CETUXIMAB [Suspect]
     Indication: HEAD AND NECK CANCER
     Dosage: STOPPED,REC INF:08MAR11
     Route: 042
     Dates: start: 20110322
  2. CISPLATIN FOR INJ [Suspect]
     Indication: HEAD AND NECK CANCER
     Dosage: STOPPED,REC INF:08MAR11
     Route: 042
     Dates: start: 20110308
  3. FLUOROURACIL [Suspect]
     Indication: HEAD AND NECK CANCER
     Dosage: STOPPED
     Route: 042
     Dates: start: 20110308
  4. GABAPENTIN [Concomitant]
  5. PANTOZOL [Concomitant]
  6. ARCOXIA [Concomitant]
  7. MORPHINE [Concomitant]
  8. MOVICOL [Concomitant]
  9. FLUCONAZOLE [Concomitant]
  10. DOXYCYCLINE [Concomitant]

REACTIONS (1)
  - Acute hepatic failure [Fatal]
